FAERS Safety Report 7357548-X (Version None)
Quarter: 2011Q1

REPORT INFORMATION
  Report Type: 
  Country: None (occurrence: None)
  Receive Date: 20110317
  Receipt Date: 20110311
  Transmission Date: 20110831
  Serious: Yes (Hospitalization, Other)
  Sender: FDA-Public Use
  Company Number: BR-ELI_LILLY_AND_COMPANY-BR201102001156

PATIENT
  Sex: Female
  Weight: 65 kg

DRUGS (4)
  1. GLICLAZIDE [Concomitant]
     Dosage: UNK, UNKNOWN
     Route: 065
  2. BYETTA [Suspect]
     Indication: DIABETES MELLITUS
     Dosage: 5 UG, EACH EVENING
     Route: 058
  3. METFORMIN HYDROCHLORIDE [Concomitant]
     Indication: DIABETES MELLITUS
     Dosage: UNK, UNKNOWN
     Route: 065
  4. NEXIUM [Concomitant]
     Indication: GASTRITIS EROSIVE
     Dosage: UNK, UNKNOWN
     Route: 065

REACTIONS (6)
  - DYSPEPSIA [None]
  - CHOLELITHIASIS [None]
  - ENZYME ABNORMALITY [None]
  - NAUSEA [None]
  - ABDOMINAL PAIN UPPER [None]
  - GASTRITIS EROSIVE [None]
